FAERS Safety Report 11617076 (Version 1)
Quarter: 2015Q4

REPORT INFORMATION
  Report Type: Report from Study
  Country: NL (occurrence: NL)
  Receive Date: 20151009
  Receipt Date: 20151009
  Transmission Date: 20160304
  Serious: Yes (Hospitalization, Other)
  Sender: FDA-Public Use
  Company Number: NL-ABBVIE-15P-114-1475907-00

PATIENT
  Age: 80 Year
  Sex: Male

DRUGS (2)
  1. DUODOPA [Suspect]
     Active Substance: CARBIDOPA\LEVODOPA
     Indication: PARKINSON^S DISEASE
     Dosage: MORNING DOSE: 13.5 CONTINUOUS DOSE: 3.4 EXTRA DOSE: 1 NIGHT DOSE: NO NIGHT DOSE
     Route: 050
     Dates: start: 20150326
  2. ACENOCOUMAROL [Concomitant]
     Active Substance: ACENOCOUMAROL
     Indication: PRODUCT USED FOR UNKNOWN INDICATION

REACTIONS (8)
  - Fall [Recovered/Resolved]
  - Amnesia [Unknown]
  - Musculoskeletal stiffness [Recovered/Resolved]
  - Cardiac disorder [Not Recovered/Not Resolved]
  - Eye contusion [Not Recovered/Not Resolved]
  - Malaise [Unknown]
  - Atrial fibrillation [Unknown]
  - Device alarm issue [Unknown]

NARRATIVE: CASE EVENT DATE: 20150930
